FAERS Safety Report 9164030 (Version 1)
Quarter: 2013Q1

REPORT INFORMATION
  Report Type: Report from Study
  Country: US (occurrence: US)
  Receive Date: 20130313
  Receipt Date: 20130313
  Transmission Date: 20140127
  Serious: Yes (Hospitalization)
  Sender: FDA-Public Use
  Company Number: US-RB-025036-09

PATIENT
  Age: 43 Year
  Sex: Male

DRUGS (1)
  1. SUBOXONE [Suspect]
     Indication: DRUG DEPENDENCE
     Route: 060
     Dates: start: 2008, end: 2010

REACTIONS (5)
  - Arthropod sting [Recovered/Resolved]
  - Swelling face [Recovered/Resolved]
  - Influenza [Recovered/Resolved]
  - Ear pain [Recovered/Resolved]
  - Underdose [Recovered/Resolved]
